FAERS Safety Report 5229201-X (Version None)
Quarter: 2007Q1

REPORT INFORMATION
  Report Type: 
  Country: None (occurrence: None)
  Receive Date: 20070131
  Receipt Date: 20070117
  Transmission Date: 20070707
  Serious: Yes (Death)
  Sender: FDA-Public Use
  Company Number: 152005ISR

PATIENT
  Age: 4 Year
  Sex: Female

DRUGS (10)
  1. CARBOPLATIN [Suspect]
     Indication: NEUROBLASTOMA
     Dosage: TWICE (750 MG/M2)
  2. ETOPOSIDE [Suspect]
     Indication: NEUROBLASTOMA
     Dosage: THREE TIMES (1 IN 2 D)
  3. CISPLATIN [Suspect]
     Indication: NEUROBLASTOMA
     Dosage: THREE TIEMS (80 MG/M2)
  4. CYCLOPHOSPHAMIDE [Suspect]
     Indication: NEUROBLASTOMA
     Dosage: 1.05 G/M^2/DAY ONCE FOR 2 DAYS
  5. VINCRISTINE SULFATE [Suspect]
     Indication: NEUROBLASTOMA
     Dosage: SIX TIMES (1.5 MG/M2)
  6. DOXORUBICIN HCL [Suspect]
  7. BUSULFAN [Suspect]
  8. MELPHALAN [Suspect]
  9. CHLORMETHINE [Suspect]
  10. DACARBAZINE [Suspect]

REACTIONS (12)
  - ABDOMINAL NEOPLASM [None]
  - ACUTE MYELOID LEUKAEMIA [None]
  - ACUTE MYELOMONOCYTIC LEUKAEMIA [None]
  - ADRENAL NEOPLASM [None]
  - BONE MARROW TUMOUR CELL INFILTRATION [None]
  - CHROMOSOMAL DELETION [None]
  - DRUG TOXICITY [None]
  - GENE MUTATION [None]
  - INFECTION [None]
  - MEDIASTINUM NEOPLASM [None]
  - NEUROBLASTOMA RECURRENT [None]
  - STEM CELL TRANSPLANT [None]
